FAERS Safety Report 5521528-7 (Version None)
Quarter: 2007Q4

REPORT INFORMATION
  Report Type: 
  Country: None (occurrence: None)
  Receive Date: 20071116
  Receipt Date: 20071116
  Transmission Date: 20080405
  Serious: Yes (Life-Threatening)
  Sender: FDA-Public Use
  Company Number: None

PATIENT
  Sex: Female
  Weight: 77.7919 kg

DRUGS (1)
  1. PHENYTOIN [Suspect]
     Dosage: 100 MG/4X DAY PO M.W.F.
     Route: 048
     Dates: start: 20050901, end: 20050901

REACTIONS (1)
  - CONVULSION [None]
